FAERS Safety Report 5379391-3 (Version None)
Quarter: 2007Q3

REPORT INFORMATION
  Report Type: 
  Country: None (occurrence: None)
  Receive Date: 20070705
  Receipt Date: 20070628
  Transmission Date: 20080115
  Serious: Yes (Other)
  Sender: FDA-Public Use
  Company Number: US-GENENTECH-243770

PATIENT
  Sex: Male

DRUGS (6)
  1. SOMATROPIN [Suspect]
     Indication: CRANIOPHARYNGIOMA
     Dosage: 1.9 MG, 6/WEEK
     Route: 058
     Dates: start: 19981103, end: 20070319
  2. SYNTHROID [Concomitant]
     Indication: DRUG USE FOR UNKNOWN INDICATION
     Dosage: 100 A?G, QD
     Route: 048
  3. CORTEF [Concomitant]
     Indication: DRUG USE FOR UNKNOWN INDICATION
     Dosage: 5 MG, QAM
     Route: 048
  4. CORTEF [Concomitant]
     Dosage: 2.5 MG, QPM
     Route: 048
  5. CORTEF [Concomitant]
     Dosage: 3.75 MG, QHS
     Route: 048
  6. DDAVP (NEEDS NO REFRIGERATION) [Concomitant]
     Indication: DRUG USE FOR UNKNOWN INDICATION
     Dosage: 0.05 MG, QHS
     Route: 048

REACTIONS (1)
  - CRANIOPHARYNGIOMA [None]
